FAERS Safety Report 23234437 (Version 1)
Quarter: 2023Q4

REPORT INFORMATION
  Report Type: Report from Study
  Country: US (occurrence: US)
  Receive Date: 20231128
  Receipt Date: 20231128
  Transmission Date: 20240109
  Serious: Yes (Hospitalization)
  Sender: FDA-Public Use
  Company Number: US-UPSHER-SMITH LABORATORIES, LLC-2023USL00960

PATIENT
  Sex: Male

DRUGS (2)
  1. VIGADRONE [Suspect]
     Active Substance: VIGABATRIN
     Indication: Lennox-Gastaut syndrome
     Dosage: 1000 MG (20 ML) BY MOUTH EVERY MORNING AND ADMINISTER 2000 MG (40 ML) EVERY EVENING
     Route: 048
     Dates: start: 20230926, end: 2023
  2. VIGADRONE [Suspect]
     Active Substance: VIGABATRIN
     Dosage: DECREASED DOSE
     Dates: start: 2023

REACTIONS (2)
  - Illness [Unknown]
  - Abdominal pain upper [Unknown]

NARRATIVE: CASE EVENT DATE: 20230101
